FAERS Safety Report 7182795-X (Version None)
Quarter: 2010Q4

REPORT INFORMATION
  Report Type: 
  Country: None (occurrence: None)
  Receive Date: 20101221
  Receipt Date: 20101214
  Transmission Date: 20110411
  Serious: Yes (Hospitalization, Other)
  Sender: FDA-Public Use
  Company Number: AR-AMGEN-ARGSP2010004315

PATIENT

DRUGS (1)
  1. ENBREL [Suspect]
     Indication: RHEUMATOID ARTHRITIS
     Dosage: UNK DOSE
     Dates: end: 20100601

REACTIONS (3)
  - CEREBRAL ATROPHY [None]
  - CEREBRAL INFARCTION [None]
  - SENILE DEMENTIA [None]
